FAERS Safety Report 10900649 (Version 1)
Quarter: 2015Q1

REPORT INFORMATION
  Report Type: Spontaneous
  Country: US (occurrence: None)
  Receive Date: 20150303
  Receipt Date: 20150303
  Transmission Date: 20150721
  Serious: No
  Sender: FDA-Public Use
  Company Number: None

PATIENT
  Age: 63 Year
  Sex: Male

DRUGS (9)
  1. TERAZOSIN [Concomitant]
     Active Substance: TERAZOSIN\TERAZOSIN HYDROCHLORIDE
  2. AMMONLUM LACTATE 12% TOP CREAM [Concomitant]
  3. AMANTADINE [Concomitant]
     Active Substance: AMANTADINE
  4. AMPYRA [Suspect]
     Active Substance: DALFAMPRIDINE
     Indication: MULTIPLE SCLEROSIS
     Route: 048
     Dates: start: 201109
  5. HUMALOG MIX 75-25 [Concomitant]
  6. BACLOFEN. [Concomitant]
     Active Substance: BACLOFEN
  7. UREA 20% TOP CREAM [Concomitant]
  8. AMPYRA [Concomitant]
     Active Substance: DALFAMPRIDINE
  9. SIMVASTATIN. [Concomitant]
     Active Substance: SIMVASTATIN

REACTIONS (1)
  - Urinary tract infection [None]

NARRATIVE: CASE EVENT DATE: 20130305
